FAERS Safety Report 21213459 (Version 2)
Quarter: 2022Q3

REPORT INFORMATION
  Report Type: Report from Study
  Country: US (occurrence: US)
  Receive Date: 20220815
  Receipt Date: 20220911
  Transmission Date: 20221027
  Serious: No
  Sender: FDA-Public Use
  Company Number: US-SANOFI-01230264

PATIENT
  Age: 70 Year
  Sex: Male

DRUGS (1)
  1. DUPILUMAB [Suspect]
     Active Substance: DUPILUMAB
     Indication: Dermatitis atopic
     Dosage: 300 MG
     Route: 058

REACTIONS (3)
  - COVID-19 [Recovering/Resolving]
  - Cough [Not Recovered/Not Resolved]
  - Influenza like illness [Unknown]
